FAERS Safety Report 9754472 (Version 3)
Quarter: 2014Q1

REPORT INFORMATION
  Report Type: Report from Study
  Country: US (occurrence: US)
  Receive Date: 20131213
  Receipt Date: 20140110
  Transmission Date: 20141002
  Serious: No
  Sender: FDA-Public Use
  Company Number: US-ASTRAZENECA-2013SE85191

PATIENT
  Age: 80 Year
  Sex: Female
  Weight: 78 kg

DRUGS (9)
  1. NEXIUM [Suspect]
     Indication: DYSPEPSIA
     Route: 048
     Dates: start: 2010
  2. NEXIUM [Suspect]
     Indication: GASTROOESOPHAGEAL REFLUX DISEASE
     Route: 048
     Dates: start: 2010
  3. NEXIUM [Suspect]
     Indication: DYSPEPSIA
     Dosage: EVERY OTHER DAY
     Route: 048
  4. NEXIUM [Suspect]
     Indication: GASTROOESOPHAGEAL REFLUX DISEASE
     Dosage: EVERY OTHER DAY
     Route: 048
  5. CRESTOR [Suspect]
     Indication: BLOOD CHOLESTEROL INCREASED
     Route: 048
     Dates: start: 2003
  6. CRESTOR [Suspect]
     Indication: BLOOD CHOLESTEROL INCREASED
     Dosage: EVERY OTHER DAY
     Route: 048
     Dates: start: 20131129
  7. HYDROCHLOROTHIAZIDE [Concomitant]
     Indication: HYPERTENSION
     Route: 048
  8. METOPROLOL TARTRATE [Concomitant]
     Indication: HYPERTENSION
     Route: 048
  9. KLOROCON [Concomitant]
     Indication: MINERAL SUPPLEMENTATION
     Route: 048
     Dates: start: 2011

REACTIONS (4)
  - Hypokalaemia [Not Recovered/Not Resolved]
  - Dyspepsia [Unknown]
  - Intentional drug misuse [Recovered/Resolved]
  - Drug dose omission [Not Recovered/Not Resolved]
